FAERS Safety Report 7055269-4 (Version None)
Quarter: 2010Q4

REPORT INFORMATION
  Report Type: 
  Country: None (occurrence: None)
  Receive Date: 20101021
  Receipt Date: 20101019
  Transmission Date: 20110411
  Serious: Yes (Other)
  Sender: FDA-Public Use
  Company Number: CA-SANOFI-AVENTIS-2010SA016775

PATIENT
  Age: 47 Year
  Sex: Female
  Weight: 70.4 kg

DRUGS (3)
  1. DOCETAXEL [Suspect]
     Route: 041
     Dates: start: 20081003, end: 20081003
  2. DOCETAXEL [Suspect]
     Route: 041
     Dates: start: 20090327, end: 20090327
  3. BLINDED THERAPY [Suspect]
     Route: 042
     Dates: start: 20081003, end: 20090327

REACTIONS (1)
  - MENSTRUATION IRREGULAR [None]
